FAERS Safety Report 20903979 (Version 1)
Quarter: 2022Q2

REPORT INFORMATION
  Report Type: Report from Study
  Country: US (occurrence: US)
  Receive Date: 20220602
  Receipt Date: 20220602
  Transmission Date: 20220721
  Serious: Yes (Death)
  Sender: FDA-Public Use
  Company Number: US-SUN PHARMACEUTICAL INDUSTRIES LTD-2022R1-338802

PATIENT
  Age: 80 Year

DRUGS (4)
  1. DOXORUBICIN [Suspect]
     Active Substance: DOXORUBICIN
     Indication: Chemotherapy
     Dosage: 25 MILLIGRAM/SQ. METER/DAYS 1 AND 15/EACH 28 DAY UPTO SIX CYCLES
     Route: 042
  2. BLEOMYCIN [Suspect]
     Active Substance: BLEOMYCIN SULFATE
     Indication: Chemotherapy
     Dosage: 10 UNITS/M2//DAYS 1 AND 15/EACH 28 DAY UPTO SIX CYCLES
     Route: 042
  3. DACARBAZINE [Suspect]
     Active Substance: DACARBAZINE
     Indication: Chemotherapy
     Dosage: 375 MILLIGRAM/SQ. METER/DAYS 1 AND 15/EACH 28 DAY UPTO SIX CYCLES
     Route: 042
  4. VINBLASTINE [Suspect]
     Active Substance: VINBLASTINE
     Indication: Chemotherapy
     Dosage: 6 MILLIGRAM/SQ. METER/SQ. METER/DAYS 1 AND 15/EACH 28 DAY UPTO SIX CYCLES
     Route: 042

REACTIONS (1)
  - Pulmonary toxicity [Fatal]
